FAERS Safety Report 6008471-4 (Version None)
Quarter: 2008Q4

REPORT INFORMATION
  Report Type: 
  Country: None (occurrence: None)
  Receive Date: 20081217
  Receipt Date: 20080229
  Transmission Date: 20090506
  Serious: Yes (Death, Life-Threatening, Other)
  Sender: FDA-Public Use
  Company Number: FR-NOVOPROD-273045

PATIENT
  Age: 51 Year
  Sex: Male

DRUGS (15)
  1. ACTRAPID [Suspect]
     Indication: INSULIN-REQUIRING TYPE 2 DIABETES MELLITUS
     Dosage: UNK, UNK
     Dates: start: 20070905
  2. AMBISOME [Concomitant]
     Dosage: 10 MG/KG, QD
     Dates: start: 20070831, end: 20070904
  3. AMBISOME [Concomitant]
     Dates: start: 20080907, end: 20080912
  4. AMBISOME [Concomitant]
     Dosage: 10 MG/KG, QD
     Dates: start: 20080912, end: 20080914
  5. AMBISOME [Concomitant]
     Dosage: 7.5 MG, QD
     Dates: start: 20080917, end: 20080919
  6. AMBISOME [Concomitant]
     Dosage: 10 MG/KG, QD
     Dates: start: 20080919
  7. AMBISOME [Concomitant]
     Dosage: 3 MG/KG, QD
     Route: 042
     Dates: start: 20070923
  8. COVERSYL                           /00790701/ [Concomitant]
     Route: 048
     Dates: start: 20070921, end: 20070923
  9. LANTUS [Concomitant]
     Route: 058
  10. CALCIPARINE [Concomitant]
     Route: 058
  11. TIENAM [Concomitant]
     Route: 042
  12. OMEPRAZOLE [Concomitant]
     Route: 042
  13. LOXEN [Concomitant]
     Route: 048
  14. SECTRAL [Concomitant]
     Route: 048
  15. EUPRESSYL                          /00631801/ [Concomitant]
     Dosage: UNK, UNK
     Route: 048
     Dates: start: 20070913

REACTIONS (2)
  - CARDIO-RESPIRATORY ARREST [None]
  - RENAL FAILURE ACUTE [None]
